FAERS Safety Report 21252431 (Version 1)
Quarter: 2022Q3

REPORT INFORMATION
  Report Type: Spontaneous
  Country: IT (occurrence: IT)
  Receive Date: 20220825
  Receipt Date: 20220825
  Transmission Date: 20221027
  Serious: Yes (Life-Threatening, Hospitalization)
  Sender: FDA-Public Use
  Company Number: IT-SUN PHARMACEUTICAL INDUSTRIES LTD-2022RR-349733

PATIENT
  Age: 48 Year
  Sex: Male
  Weight: 70 kg

DRUGS (4)
  1. OXALIPLATIN [Suspect]
     Active Substance: OXALIPLATIN
     Indication: Rectal adenocarcinoma
     Dosage: 45 MILLIGRAM, UNK, CONCENTRATE FOR SOLUTION FOR INFUSION
     Route: 041
     Dates: start: 20220620, end: 20220620
  2. OXALIPLATIN [Suspect]
     Active Substance: OXALIPLATIN
     Indication: Rectal adenocarcinoma
     Dosage: 200 MILLIGRAM, UNK
     Route: 041
     Dates: start: 20220620, end: 20220620
  3. EPINEPHRINE [Interacting]
     Active Substance: EPINEPHRINE
     Indication: Product used for unknown indication
     Dosage: 2 MILLIGRAM, UNK
     Route: 041
     Dates: start: 20220620, end: 20220620
  4. ATENOLOLO + CLORTALIDONE [Concomitant]
     Indication: Hypertension
     Dosage: UNK
     Route: 065

REACTIONS (4)
  - Myocardial infarction [Recovered/Resolved with Sequelae]
  - Laryngospasm [Recovered/Resolved]
  - Paraesthesia [Recovered/Resolved]
  - Bronchospasm [Recovered/Resolved]

NARRATIVE: CASE EVENT DATE: 20220620
